FAERS Safety Report 4915367-5 (Version None)
Quarter: 2006Q1

REPORT INFORMATION
  Report Type: 
  Country: None (occurrence: None)
  Receive Date: 20060217
  Receipt Date: 20060216
  Transmission Date: 20060701
  Serious: Yes (Death, Other)
  Sender: FDA-Public Use
  Company Number: 2006PK00356

PATIENT
  Age: 28665 Day
  Sex: Male

DRUGS (12)
  1. CASODEX [Suspect]
     Indication: PROSTATE CANCER
     Route: 048
     Dates: start: 19990906, end: 19991011
  2. ZOLADEX [Suspect]
     Indication: PROSTATE CANCER
     Route: 058
     Dates: start: 19990906, end: 19991021
  3. SOTALOL HCL [Concomitant]
     Indication: HYPERTENSION
     Route: 048
     Dates: start: 19980701
  4. BENAZEPRIL HCL [Concomitant]
     Indication: HYPERTENSION
  5. ASPIRIN [Concomitant]
  6. KALINOR [Concomitant]
  7. CIPRAMIL [Concomitant]
     Indication: DEPRESSION
  8. TEBESIUM [Concomitant]
  9. PEPDUL MITE [Concomitant]
     Indication: PROPHYLAXIS AGAINST GASTROINTESTINAL ULCER
  10. MULTI-VITAMIN [Concomitant]
  11. HYDROCHLOROTHIAZIDE [Concomitant]
     Indication: HYPERTENSION
  12. LEXOTAN [Concomitant]
     Indication: INSOMNIA

REACTIONS (4)
  - ANGINA UNSTABLE [None]
  - GENERAL PHYSICAL HEALTH DETERIORATION [None]
  - HYPERTENSION [None]
  - MYOCARDIAL INFARCTION [None]
